FAERS Safety Report 19644762 (Version 1)
Quarter: 2021Q3

REPORT INFORMATION
  Report Type: Spontaneous
  Country: US (occurrence: US)
  Receive Date: 20210802
  Receipt Date: 20210802
  Transmission Date: 20211014
  Serious: No
  Sender: FDA-Public Use
  Company Number: US-SA-2021SA249805

PATIENT
  Age: 28 Year
  Sex: Female

DRUGS (5)
  1. TOPIRAMATE. [Concomitant]
     Active Substance: TOPIRAMATE
  2. CLONAZEPAM. [Concomitant]
     Active Substance: CLONAZEPAM
  3. HYDROXYZINE HYDROCHLORIDE. [Concomitant]
     Active Substance: HYDROXYZINE HYDROCHLORIDE
  4. DUPIXENT [Suspect]
     Active Substance: DUPILUMAB
     Dosage: 300 MG
     Route: 058
  5. EUCRISA [Concomitant]
     Active Substance: CRISABOROLE

REACTIONS (1)
  - Product dose omission issue [Unknown]
